FAERS Safety Report 23271015 (Version 4)
Quarter: 2024Q3

REPORT INFORMATION
  Report Type: Spontaneous
  Country: US (occurrence: US)
  Receive Date: 20231207
  Receipt Date: 20240806
  Transmission Date: 20241017
  Serious: Yes (Hospitalization, Other)
  Sender: BRISTOL MYERS SQUIBB
  Company Number: US-BRISTOL-MYERS SQUIBB COMPANY-2023-176955

PATIENT
  Age: 73 Year
  Sex: Male

DRUGS (1)
  1. POMALYST [Suspect]
     Active Substance: POMALIDOMIDE
     Indication: Plasma cell myeloma
     Dosage: FREQUENCY: QD FOR 21 DAYS ON AND 7 DAYS OFF/21 DAYS ON 7 OFF
     Route: 048

REACTIONS (5)
  - Pneumonia [Unknown]
  - Influenza [Unknown]
  - Clostridium difficile infection [Recovered/Resolved]
  - Tooth disorder [Unknown]
  - Injection site erythema [Not Recovered/Not Resolved]

NARRATIVE: CASE EVENT DATE: 20240101
